FAERS Safety Report 24285994 (Version 2)
Quarter: 2024Q3

REPORT INFORMATION
  Report Type: Spontaneous
  Country: IL (occurrence: IL)
  Receive Date: 20240905
  Receipt Date: 20240925
  Transmission Date: 20241016
  Serious: Yes (Hospitalization, Other)
  Sender: ETON PHARMACEUTICALS
  Company Number: IL-ETON PHARMACEUTICALS, INC-2024ETO000219

PATIENT
  Age: 7 Week
  Sex: Female
  Weight: 7 kg

DRUGS (4)
  1. ALKINDI SPRINKLE [Suspect]
     Active Substance: HYDROCORTISONE
     Indication: Product used for unknown indication
     Dosage: 15 MILLIGRAM/SQ. METER (BASED ON BODY SURFACE AREA)
     Route: 065
  2. ALKINDI SPRINKLE [Suspect]
     Active Substance: HYDROCORTISONE
     Dosage: 15 MILLIGRAM/SQ. METER (BASED ON BODY SURFACE AREA)
     Route: 065
  3. FLORINEF ACETATE [Concomitant]
     Active Substance: FLUDROCORTISONE ACETATE
     Indication: Product used for unknown indication
  4. SODIUM CHLORIDE [Concomitant]
     Active Substance: SODIUM CHLORIDE
     Indication: Product used for unknown indication
     Dosage: UNK

REACTIONS (1)
  - Adrenocortical insufficiency acute [Recovered/Resolved]
